FAERS Safety Report 12920669 (Version 1)
Quarter: 2016Q4

REPORT INFORMATION
  Report Type: Spontaneous
  Country: US (occurrence: US)
  Receive Date: 20161107
  Receipt Date: 20161107
  Transmission Date: 20170207
  Serious: Yes (Death, Life-Threatening, Hospitalization)
  Sender: FDA-Public Use
  Company Number: US-PRAGMA PHARMACEUTICALS, LLC-2016PRG00306

PATIENT
  Age: 60 Year
  Sex: Male
  Weight: 110 kg

DRUGS (17)
  1. VITAMIN C [Concomitant]
     Active Substance: ASCORBIC ACID
  2. AFINITOR [Concomitant]
     Active Substance: EVEROLIMUS
  3. LISINOPRIL. [Suspect]
     Active Substance: LISINOPRIL
     Route: 048
  4. OXYCONTIN [Concomitant]
     Active Substance: OXYCODONE HYDROCHLORIDE
  5. LASIX [Concomitant]
     Active Substance: FUROSEMIDE
  6. LENVIMA [Suspect]
     Active Substance: LENVATINIB
     Indication: NEOPLASM MALIGNANT
     Dosage: 18 MG, 1X/DAY
     Route: 048
     Dates: start: 20160621
  7. NYSTATIN. [Concomitant]
     Active Substance: NYSTATIN
  8. KEFLEX [Suspect]
     Active Substance: CEPHALEXIN
     Indication: URINARY TRACT INFECTION
     Dosage: UNK
     Route: 048
     Dates: start: 2016
  9. LENVIMA [Suspect]
     Active Substance: LENVATINIB
     Dosage: 14 MG, 1X/DAY
     Route: 048
  10. FLOMAX [Concomitant]
     Active Substance: TAMSULOSIN HYDROCHLORIDE
  11. VITAMIN D3 [Concomitant]
     Active Substance: CHOLECALCIFEROL
  12. DULCOLAX NOS [Concomitant]
     Active Substance: BISACODYL OR DOCUSATE SODIUM
  13. SYMBICORT [Concomitant]
     Active Substance: BUDESONIDE\FORMOTEROL FUMARATE DIHYDRATE
  14. PROAIR HFA [Concomitant]
     Active Substance: ALBUTEROL SULFATE
  15. BONE AND JOINT HEALTH (CALCIUM) [Concomitant]
  16. MORPHINE [Concomitant]
     Active Substance: MORPHINE
  17. ENERGY PACK [Concomitant]

REACTIONS (12)
  - Diarrhoea [Unknown]
  - Anaphylactic reaction [Recovered/Resolved]
  - Abdominal pain [None]
  - Vomiting [Unknown]
  - Respiratory failure [Fatal]
  - Drug administration error [Recovered/Resolved]
  - Joint swelling [Unknown]
  - Blood glucose fluctuation [Unknown]
  - Nausea [Unknown]
  - Pneumonia [Not Recovered/Not Resolved]
  - Oropharyngeal pain [Unknown]
  - Hyponatraemia [Not Recovered/Not Resolved]

NARRATIVE: CASE EVENT DATE: 2016
